FAERS Safety Report 8391584-X (Version None)
Quarter: 2012Q2

REPORT INFORMATION
  Report Type: 
  Country: None (occurrence: None)
  Receive Date: 20120529
  Receipt Date: 20120524
  Transmission Date: 20120825
  Serious: Yes (Other)
  Sender: FDA-Public Use
  Company Number: PHHY2011US51663

PATIENT
  Sex: Female

DRUGS (13)
  1. ASACOL [Concomitant]
     Dosage: 400 MG, BID
     Route: 048
  2. BACLOFEN [Concomitant]
     Dosage: 20 MG, TID
     Route: 048
  3. GILENYA [Suspect]
     Indication: MULTIPLE SCLEROSIS RELAPSE
     Dosage: 0.5 MG, QD
     Route: 048
     Dates: start: 20110321, end: 20110515
  4. BUPROPION HCL [Concomitant]
     Dosage: 300 MG, QD
     Route: 048
  5. CITALOPRAM [Concomitant]
     Indication: DEPRESSION
     Dosage: 40 MG, QD
     Route: 048
  6. OXYCODONE HCL [Concomitant]
     Dosage: UNK UKN, PRN
  7. HYDROCHLOROTHIAZIDE [Concomitant]
     Dosage: 50 MG, QD
  8. LEVOTHYROXINE SODIUM [Concomitant]
     Dosage: 75 MG, QD
     Route: 048
  9. LORAZEPAM [Concomitant]
     Dosage: 1 MG, TID
  10. OMEPRAZOLE [Concomitant]
     Dosage: 20 MG, BID
  11. PROMETHAZINE [Concomitant]
     Dosage: 25 MG, QD
     Route: 048
  12. GABAPENTIN [Concomitant]
     Indication: PAIN
     Dosage: 100 MG, TID
     Route: 048
  13. ATENOLOL [Suspect]
     Indication: HYPERTENSION
     Dosage: 100 MG, BID
     Route: 048

REACTIONS (4)
  - HYPOTENSION [None]
  - CHEST DISCOMFORT [None]
  - DIZZINESS [None]
  - DYSPNOEA [None]
